FAERS Safety Report 25084373 (Version 1)
Quarter: 2025Q1

REPORT INFORMATION
  Report Type: Spontaneous
  Country: US (occurrence: US)
  Receive Date: 20250317
  Receipt Date: 20250317
  Transmission Date: 20250409
  Serious: Yes (Other)
  Sender: PFIZER
  Company Number: US-PFIZER INC-PV202500030232

PATIENT
  Age: 63 Year
  Sex: Male

DRUGS (1)
  1. HYDROCORTISONE [Suspect]
     Active Substance: HYDROCORTISONE
     Route: 048

REACTIONS (3)
  - Treatment noncompliance [Unknown]
  - Atrial fibrillation [Recovering/Resolving]
  - Hypotension [Recovering/Resolving]
